FAERS Safety Report 19897254 (Version 6)
Quarter: 2022Q1

REPORT INFORMATION
  Report Type: Spontaneous
  Country: US (occurrence: US)
  Receive Date: 20210930
  Receipt Date: 20220217
  Transmission Date: 20220423
  Serious: Yes (Other)
  Sender: FDA-Public Use
  Company Number: US-BEH-2021136309

PATIENT
  Sex: Male

DRUGS (3)
  1. HUMATE-P [Suspect]
     Active Substance: HUMAN COAGULATION FACTOR VIII/VON WILLEBRAND FACTOR COMPLEX
     Indication: Factor VIII deficiency
     Dosage: 2500 F8 UNITS, TIW AND DAILY AS NEEDED FOR MINOR BLEEDS, 4000 F8 UNITS FOR MAJOR BLEEDS
     Route: 042
     Dates: start: 201312
  2. HUMATE-P [Suspect]
     Active Substance: HUMAN COAGULATION FACTOR VIII/VON WILLEBRAND FACTOR COMPLEX
     Indication: Factor VIII deficiency
     Dosage: 2500 INTERNATIONAL UNIT, TIW
     Route: 042
     Dates: start: 20210913
  3. HUMATE-P [Suspect]
     Active Substance: HUMAN COAGULATION FACTOR VIII/VON WILLEBRAND FACTOR COMPLEX
     Indication: Prophylaxis
     Dosage: 4000 F8 UNITS (3600-4400) ONCE AS NEEDED FOR MAJOR BLEED
     Route: 042
     Dates: start: 201312

REACTIONS (10)
  - Haemorrhage [Unknown]
  - Haemorrhage [Unknown]
  - Contusion [Unknown]
  - Haemarthrosis [Unknown]
  - Haemarthrosis [Unknown]
  - Haematoma [Unknown]
  - Epistaxis [Unknown]
  - Haemorrhage [Not Recovered/Not Resolved]
  - Contusion [Recovered/Resolved]
  - Haematoma [Recovered/Resolved]

NARRATIVE: CASE EVENT DATE: 20210101
